FAERS Safety Report 13682880 (Version 1)
Quarter: 2017Q2

REPORT INFORMATION
  Report Type: Spontaneous
  Country: US (occurrence: US)
  Receive Date: 20170623
  Receipt Date: 20170623
  Transmission Date: 20170830
  Serious: No
  Sender: FDA-Public Use
  Company Number: US-MALLINCKRODT-T201700983

PATIENT
  Sex: Female

DRUGS (4)
  1. H.P. ACTHAR [Suspect]
     Active Substance: CORTICOTROPIN
     Indication: MULTIPLE SCLEROSIS
  2. VITAMIN D [Concomitant]
     Active Substance: CHOLECALCIFEROL
     Dosage: EVERY NIGHT
  3. H.P. ACTHAR [Suspect]
     Active Substance: CORTICOTROPIN
     Indication: OPTIC NEURITIS
     Dosage: 80 UNITS DAILY (5 DAY COURSE)
     Route: 065
  4. TYSABRI [Concomitant]
     Active Substance: NATALIZUMAB
     Dosage: ONCE A MONTH

REACTIONS (8)
  - Muscle twitching [Unknown]
  - Fatigue [Unknown]
  - Pain [Unknown]
  - Headache [Unknown]
  - Injection site reaction [Unknown]
  - Multiple sclerosis relapse [Recovering/Resolving]
  - Lethargy [Unknown]
  - Energy increased [Unknown]
